FAERS Safety Report 8585746-6 (Version None)
Quarter: 2012Q3

REPORT INFORMATION
  Report Type: 
  Country: None (occurrence: None)
  Receive Date: 20120810
  Receipt Date: 20120731
  Transmission Date: 20120928
  Serious: Yes (Hospitalization, Other)
  Sender: FDA-Public Use
  Company Number: US-009507513-1106USA00887

PATIENT

DRUGS (15)
  1. ASPIRIN [Concomitant]
     Dosage: 1 DF, QD
     Dates: start: 19900101
  2. NIACIN [Concomitant]
     Dosage: 1 DF, QD
     Dates: start: 19800101
  3. VITAMIN E [Concomitant]
     Dosage: 1 DF, QD
     Dates: start: 19800101
  4. UBIDECARENONE [Concomitant]
     Dosage: COQ10
     Dates: start: 19800101
  5. FOSAMAX [Suspect]
     Dosage: 70 MG, QW
     Route: 048
     Dates: start: 19980501, end: 20090101
  6. ASCORBIC ACID [Concomitant]
     Dosage: 1 DF, QD
     Dates: start: 19800101
  7. BIOTIN [Concomitant]
     Dosage: 1 DF, QD
     Dates: start: 19800101
  8. GLUCOSAMINE [Concomitant]
     Dosage: 1 DF, QD
     Dates: start: 19800101
  9. VITAMIN D [Concomitant]
     Dosage: UNK DF, UNK
  10. CHROMIUM PICOLINATE [Concomitant]
     Dosage: 1 DF, QD
     Dates: start: 19800101
  11. ZINC PICOLINATE [Concomitant]
     Dosage: 1 DF, QD
     Dates: start: 19800101
  12. FOSAMAX [Suspect]
     Indication: OSTEOPOROSIS
     Dosage: 10 MG, QD
     Route: 048
     Dates: start: 19970724
  13. FLAXSEED [Concomitant]
     Dosage: 1 DF, QD
     Dates: start: 19800101
  14. POTASSIUM (UNSPECIFIED) [Concomitant]
     Dosage: 1 DF, QD
     Dates: start: 19800101
  15. CALCIUM (UNSPECIFIED) [Concomitant]
     Dosage: 1 DF, QD
     Dates: start: 19800101

REACTIONS (57)
  - IMPAIRED HEALING [None]
  - HYPERCHOLESTEROLAEMIA [None]
  - RESPIRATORY DISORDER [None]
  - FATIGUE [None]
  - PRESYNCOPE [None]
  - AORTIC ARTERIOSCLEROSIS [None]
  - GASTRITIS [None]
  - ABDOMINAL PAIN [None]
  - CONSTIPATION [None]
  - THROMBOCYTOPENIA [None]
  - GASTROINTESTINAL HAEMORRHAGE [None]
  - SUPRAVENTRICULAR TACHYCARDIA [None]
  - PANCREATITIS ACUTE [None]
  - FEMUR FRACTURE [None]
  - DRUG HYPERSENSITIVITY [None]
  - PALPITATIONS [None]
  - DYSPNOEA [None]
  - MENISCUS LESION [None]
  - HYPERTRIGLYCERIDAEMIA [None]
  - RIB FRACTURE [None]
  - DEVICE FAILURE [None]
  - HYPOKALAEMIA [None]
  - ANAEMIA POSTOPERATIVE [None]
  - INTERVERTEBRAL DISC DEGENERATION [None]
  - GAIT DISTURBANCE [None]
  - LACERATION [None]
  - MUSCULOSKELETAL CHEST PAIN [None]
  - DEHYDRATION [None]
  - ADVERSE DRUG REACTION [None]
  - VITAMIN D DEFICIENCY [None]
  - BODY HEIGHT DECREASED [None]
  - ABDOMINAL DISCOMFORT [None]
  - LUMBAR SPINAL STENOSIS [None]
  - PAIN IN EXTREMITY [None]
  - FRACTURE NONUNION [None]
  - FALL [None]
  - OROPHARYNGEAL PAIN [None]
  - VOMITING [None]
  - SCOLIOSIS [None]
  - ANORECTAL DISORDER [None]
  - CONJUNCTIVAL HAEMORRHAGE [None]
  - STRESS URINARY INCONTINENCE [None]
  - INSOMNIA [None]
  - ARTHRALGIA [None]
  - BACK PAIN [None]
  - OSTEOARTHRITIS [None]
  - HYPERTENSION [None]
  - NOCTURIA [None]
  - CLAVICLE FRACTURE [None]
  - OEDEMA [None]
  - ATRIOVENTRICULAR BLOCK FIRST DEGREE [None]
  - LOSS OF CONSCIOUSNESS [None]
  - NAUSEA [None]
  - HYPOTHYROIDISM [None]
  - SPONDYLITIS [None]
  - SYNCOPE [None]
  - SPINAL OSTEOARTHRITIS [None]
